FAERS Safety Report 4668557-3 (Version None)
Quarter: 2005Q2

REPORT INFORMATION
  Report Type: 
  Country: None (occurrence: None)
  Receive Date: 20050518
  Receipt Date: 20050503
  Transmission Date: 20051028
  Serious: Yes (Hospitalization)
  Sender: FDA-Public Use
  Company Number: D0045611A

PATIENT
  Age: 72 Year
  Sex: Female

DRUGS (1)
  1. ESKALITH [Suspect]
     Dosage: 675 MG/PER DAY/ORAL
     Route: 048
     Dates: start: 20040701

REACTIONS (9)
  - CONFUSIONAL STATE [None]
  - DEPRESSED LEVEL OF CONSCIOUSNESS [None]
  - DYSARTHRIA [None]
  - ELECTROCARDIOGRAM QT PROLONGED [None]
  - MUSCLE CONTRACTIONS INVOLUNTARY [None]
  - MYOCLONUS [None]
  - SOMNOLENCE [None]
  - THERAPEUTIC AGENT TOXICITY [None]
  - VENTRICULAR ARRHYTHMIA [None]
